FAERS Safety Report 17077460 (Version 1)
Quarter: 2019Q4

REPORT INFORMATION
  Report Type: Spontaneous
  Country: CA (occurrence: CA)
  Receive Date: 20191126
  Receipt Date: 20191126
  Transmission Date: 20200122
  Serious: Yes (Other)
  Sender: FDA-Public Use
  Company Number: CA-TEVA-2019-CA-1140950

PATIENT
  Age: 52 Year
  Sex: Male

DRUGS (2)
  1. FENTANYL. [Suspect]
     Active Substance: FENTANYL
     Indication: PRODUCT USED FOR UNKNOWN INDICATION
     Route: 042
  2. METHADOSE SUGAR-FREE [Suspect]
     Active Substance: METHADONE HYDROCHLORIDE
     Indication: PRODUCT USED FOR UNKNOWN INDICATION
     Route: 042

REACTIONS (7)
  - Elbow deformity [Recovered/Resolved]
  - Cyanosis [Recovered/Resolved]
  - Musculoskeletal stiffness [Recovered/Resolved]
  - Dyspnoea [Recovered/Resolved]
  - Finger deformity [Recovered/Resolved]
  - Muscle rigidity [Recovered/Resolved]
  - Unresponsive to stimuli [Recovered/Resolved]
